FAERS Safety Report 6011099-3 (Version None)
Quarter: 2008Q4

REPORT INFORMATION
  Report Type: 
  Country: None (occurrence: None)
  Receive Date: 20081218
  Receipt Date: 20081209
  Transmission Date: 20090506
  Serious: Yes (Hospitalization)
  Sender: FDA-Public Use
  Company Number: US-EISAI MEDICAL RESEARCH-E2020-03809-SPO-US

PATIENT
  Age: 96 Year
  Sex: Female

DRUGS (3)
  1. ARICEPT [Suspect]
     Indication: DEMENTIA
     Dates: end: 20080101
  2. NAMENDA [Suspect]
     Indication: DEMENTIA
     Dosage: UNKNOWN
  3. ALLEGRA [Suspect]
     Indication: DRUG USE FOR UNKNOWN INDICATION
     Dosage: UNKNOWN
     Dates: start: 20080101

REACTIONS (4)
  - HALLUCINATION [None]
  - MUSCULAR WEAKNESS [None]
  - TREMOR [None]
  - WITHDRAWAL SYNDROME [None]
